FAERS Safety Report 5275771-5 (Version None)
Quarter: 2007Q1

REPORT INFORMATION
  Report Type: 
  Country: None (occurrence: None)
  Receive Date: 20070326
  Receipt Date: 20070322
  Transmission Date: 20070707
  Serious: Yes (Other)
  Sender: FDA-Public Use
  Company Number: FR-GLAXOSMITHKLINE-B0459849A

PATIENT
  Age: 11 Year
  Sex: Male
  Weight: 33 kg

DRUGS (1)
  1. MALARONE [Suspect]
     Indication: MALARIA PROPHYLAXIS
     Dosage: 2TABS IN THE MORNING
     Route: 048
     Dates: start: 20070223, end: 20070225

REACTIONS (8)
  - ANGIOEDEMA [None]
  - DIZZINESS [None]
  - ERYTHEMA [None]
  - EYE SWELLING [None]
  - FACE OEDEMA [None]
  - MALAISE [None]
  - SWELLING FACE [None]
  - URTICARIA [None]
